FAERS Safety Report 9729447 (Version 1)
Quarter: 2013Q4

REPORT INFORMATION
  Report Type: Spontaneous
  Country: US (occurrence: US)
  Receive Date: 20131204
  Receipt Date: 20131204
  Transmission Date: 20140711
  Serious: No
  Sender: FDA-Public Use
  Company Number: US-GILEAD-2009-0021425

PATIENT
  Sex: Female
  Weight: 90.72 kg

DRUGS (11)
  1. LETAIRIS [Suspect]
     Indication: PULMONARY ARTERIAL HYPERTENSION
     Route: 048
     Dates: start: 20090303
  2. REVATIO [Concomitant]
  3. OXYGEN [Concomitant]
  4. LASIX [Concomitant]
  5. SPIRONOLACTONE [Concomitant]
  6. ALBUTEROL [Concomitant]
  7. ADVAIR [Concomitant]
     Route: 055
  8. JANUVIA [Concomitant]
  9. GLIPIZIDE [Concomitant]
  10. LANTUS [Concomitant]
  11. PROTONIX [Concomitant]

REACTIONS (2)
  - Local swelling [Unknown]
  - Fluid retention [Unknown]
